FAERS Safety Report 9160659 (Version 2)
Quarter: 2013Q2

REPORT INFORMATION
  Report Type: Spontaneous
  Country: NL (occurrence: None)
  Receive Date: 20130219
  Receipt Date: 20130603
  Transmission Date: 20140414
  Serious: Yes (Disabling)
  Sender: FDA-Public Use
  Company Number: ADR-2013-00265

PATIENT
  Sex: 0

DRUGS (1)
  1. BACLOFEN INTRATHECAL [Suspect]
     Indication: COMPLEX REGIONAL PAIN SYNDROME
     Dosage: MEAN 725 MCG/DAY

REACTIONS (1)
  - Anorgasmia [None]
